FAERS Safety Report 7948740-1 (Version None)
Quarter: 2011Q4

REPORT INFORMATION
  Report Type: 
  Country: None (occurrence: None)
  Receive Date: 20111130
  Receipt Date: 20111121
  Transmission Date: 20120403
  Serious: Yes (Hospitalization)
  Sender: FDA-Public Use
  Company Number: RS-MPIJNJ-2011-05661

PATIENT

DRUGS (6)
  1. MELPHALAN HYDROCHLORIDE [Concomitant]
     Indication: MULTIPLE MYELOMA
     Route: 065
  2. LASIX [Concomitant]
     Indication: RENAL FAILURE CHRONIC
     Route: 065
  3. PRESOLOL                           /00422302/ [Concomitant]
     Indication: HYPERTENSION
     Dosage: UNK
     Route: 065
  4. PRILENAP [Concomitant]
     Indication: HYPERTENSION
     Route: 065
  5. PREDNISONE TAB [Concomitant]
     Indication: MULTIPLE MYELOMA
     Dosage: UNK
     Route: 065
  6. VELCADE [Suspect]
     Indication: MULTIPLE MYELOMA
     Dosage: 1.3 MG/M2, CYCLIC
     Route: 042
     Dates: start: 20111004, end: 20111111

REACTIONS (7)
  - THROMBOCYTOPENIA [None]
  - CONTUSION [None]
  - LEUKOPENIA [None]
  - ANAEMIA [None]
  - PNEUMONIA [None]
  - PYREXIA [None]
  - MALAISE [None]
